FAERS Safety Report 6752808-5 (Version None)
Quarter: 2010Q2

REPORT INFORMATION
  Report Type: 
  Country: None (occurrence: None)
  Receive Date: 20100603
  Receipt Date: 20100519
  Transmission Date: 20101027
  Serious: Yes (Hospitalization)
  Sender: FDA-Public Use
  Company Number: ES-MYLANLABS-2010S1009182

PATIENT
  Age: 50 Year
  Sex: Female

DRUGS (2)
  1. IBUPROFEN [Suspect]
     Indication: ACUTE SINUSITIS
     Dates: start: 20050601
  2. AMPICILLIN SODIUM/SULBACTAM SODIUM [Suspect]
     Indication: ACUTE SINUSITIS
     Dates: start: 20050601

REACTIONS (2)
  - ANAPHYLACTIC REACTION [None]
  - KOUNIS SYNDROME [None]
